FAERS Safety Report 16670795 (Version 1)
Quarter: 2019Q3

REPORT INFORMATION
  Report Type: Spontaneous
  Country: US (occurrence: US)
  Receive Date: 20190805
  Receipt Date: 20190805
  Transmission Date: 20191004
  Serious: No
  Sender: FDA-Public Use
  Company Number: US-RADIUS HEALTH INC.-2019US002127

PATIENT
  Sex: Female

DRUGS (2)
  1. TYMLOS [Suspect]
     Active Substance: ABALOPARATIDE
     Indication: OSTEOPOROSIS POSTMENOPAUSAL
     Dosage: QD
     Route: 058
     Dates: start: 20171219, end: 20190527
  2. TYMLOS [Suspect]
     Active Substance: ABALOPARATIDE
     Dosage: HALF DOSE
     Route: 058
     Dates: start: 20190610

REACTIONS (5)
  - Dyspepsia [Recovering/Resolving]
  - Fatigue [Recovering/Resolving]
  - Underdose [Unknown]
  - Skin disorder [Recovering/Resolving]
  - Palpitations [Recovering/Resolving]
